FAERS Safety Report 8446302-3 (Version None)
Quarter: 2012Q2

REPORT INFORMATION
  Report Type: 
  Country: None (occurrence: None)
  Receive Date: 20120618
  Receipt Date: 20120612
  Transmission Date: 20120825
  Serious: No
  Sender: FDA-Public Use
  Company Number: US-BAYER-2012-059423

PATIENT
  Age: 48 Year
  Sex: Female
  Weight: 82 kg

DRUGS (5)
  1. VALIUM [Concomitant]
  2. ALEVE (CAPLET) [Suspect]
     Dosage: 2 DF, EVERY 12 HOURS
     Route: 048
     Dates: start: 20120101
  3. TRAMADOL HCL [Concomitant]
  4. NAPROXEN SODIUM [Concomitant]
  5. GABAPENTIN [Concomitant]

REACTIONS (1)
  - NO ADVERSE EVENT [None]
